FAERS Safety Report 21880722 (Version 1)
Quarter: 2023Q1

REPORT INFORMATION
  Report Type: Spontaneous
  Country: US (occurrence: US)
  Receive Date: 20230118
  Receipt Date: 20230118
  Transmission Date: 20230417
  Serious: No
  Sender: FDA-Public Use
  Company Number: US-BAYER-2023A007577

PATIENT
  Age: 81 Year
  Sex: Male

DRUGS (1)
  1. MIRALAX [Suspect]
     Active Substance: POLYETHYLENE GLYCOL 3350
     Indication: Constipation
     Dosage: 1 DF, BID
     Route: 048
     Dates: start: 20230113

REACTIONS (4)
  - Flatulence [Unknown]
  - Diarrhoea [Unknown]
  - Drug ineffective [None]
  - Abnormal faeces [Unknown]
